FAERS Safety Report 7831346-2 (Version None)
Quarter: 2011Q4

REPORT INFORMATION
  Report Type: 
  Country: None (occurrence: None)
  Receive Date: 20111021
  Receipt Date: 20111006
  Transmission Date: 20120403
  Serious: Yes (Death, Hospitalization)
  Sender: FDA-Public Use
  Company Number: US-ALEXION-A201100790

PATIENT
  Sex: Male

DRUGS (1)
  1. SOLIRIS [Suspect]
     Indication: PAROXYSMAL NOCTURNAL HAEMOGLOBINURIA
     Dosage: UNK
     Route: 042

REACTIONS (6)
  - RESPIRATORY FAILURE [None]
  - ATRIAL FIBRILLATION [None]
  - ASTHENIA [None]
  - TRANSFUSION [None]
  - HYPERBILIRUBINAEMIA [None]
  - PSEUDOMONAL SEPSIS [None]
